APPROVED DRUG PRODUCT: DICLOFENAC SODIUM
Active Ingredient: DICLOFENAC SODIUM
Strength: 37.5MG/ML (37.5MG/ML)
Dosage Form/Route: SOLUTION;INTRAVENOUS
Application: A208786 | Product #001
Applicant: RISING PHARMA HOLDING INC
Approved: Jun 18, 2019 | RLD: No | RS: No | Type: DISCN